FAERS Safety Report 20492928 (Version 1)
Quarter: 2022Q1

REPORT INFORMATION
  Report Type: Report from Study
  Country: US (occurrence: US)
  Receive Date: 20220219
  Receipt Date: 20220219
  Transmission Date: 20220423
  Serious: Yes (Other)
  Sender: FDA-Public Use
  Company Number: US-TEVA-2022-US-2007594

PATIENT
  Age: 57 Year
  Sex: Female

DRUGS (2)
  1. COPAXONE [Suspect]
     Active Substance: GLATIRAMER ACETATE
     Route: 065
     Dates: start: 19990101
  2. DEVICE [Suspect]
     Active Substance: DEVICE
     Route: 065

REACTIONS (10)
  - Vessel puncture site haemorrhage [Unknown]
  - Injection site induration [Unknown]
  - Injection site swelling [Unknown]
  - Injection site bruising [Unknown]
  - Injection site rash [Unknown]
  - Injection site pain [Unknown]
  - Wound [Unknown]
  - Injection site scar [Unknown]
  - Injection site erythema [Unknown]
  - Wrong technique in product usage process [Unknown]

NARRATIVE: CASE EVENT DATE: 20220207
